FAERS Safety Report 9809018 (Version 1)
Quarter: 2014Q1

REPORT INFORMATION
  Report Type: Spontaneous
  Country: FR (occurrence: FR)
  Receive Date: 20140110
  Receipt Date: 20140110
  Transmission Date: 20141002
  Serious: Yes (Death)
  Sender: FDA-Public Use
  Company Number: FR-GLAXOSMITHKLINE-B0956399A

PATIENT
  Age: 73 Year
  Sex: Female

DRUGS (1)
  1. ARIXTRA [Suspect]
     Indication: THROMBOSIS PROPHYLAXIS
     Dosage: 2.5MG PER DAY
     Route: 058
     Dates: start: 20131204, end: 20131207

REACTIONS (11)
  - Cerebrovascular accident [Fatal]
  - Cerebral haemorrhage [Fatal]
  - Coma [Unknown]
  - Decerebration [Unknown]
  - Headache [Unknown]
  - Loss of consciousness [Unknown]
  - Mydriasis [Unknown]
  - Pupil fixed [Unknown]
  - Respiratory alkalosis [Unknown]
  - Hypokalaemia [Recovered/Resolved]
  - Off label use [Unknown]
